FAERS Safety Report 6367954-8 (Version None)
Quarter: 2009Q3

REPORT INFORMATION
  Report Type: 
  Country: None (occurrence: None)
  Receive Date: 20090922
  Receipt Date: 20090805
  Transmission Date: 20100115
  Serious: No
  Sender: FDA-Public Use
  Company Number: A0793790A

PATIENT
  Age: 43 Year
  Sex: Male

DRUGS (2)
  1. SEREVENT [Suspect]
     Indication: DRUG USE FOR UNKNOWN INDICATION
     Dosage: 1PUFF TWICE PER DAY
     Route: 055
     Dates: start: 20040101
  2. ALBUTEROL [Concomitant]

REACTIONS (6)
  - DIZZINESS [None]
  - DYSPNOEA [None]
  - FEELING DRUNK [None]
  - HEART RATE INCREASED [None]
  - OVERDOSE [None]
  - PRODUCT QUALITY ISSUE [None]
